FAERS Safety Report 20138289 (Version 1)
Quarter: 2021Q4

REPORT INFORMATION
  Report Type: Report from Study
  Country: US (occurrence: US)
  Receive Date: 20211202
  Receipt Date: 20211202
  Transmission Date: 20220303
  Serious: Yes (Other)
  Sender: FDA-Public Use
  Company Number: US-INSMED, INC.-2021-10213-US

PATIENT
  Age: 79 Year
  Sex: Male

DRUGS (1)
  1. ARIKAYCE [Suspect]
     Active Substance: AMIKACIN
     Indication: Product used for unknown indication
     Dosage: 590 MILLIGRAM
     Route: 055
     Dates: start: 20211104, end: 20211123

REACTIONS (3)
  - Oxygen saturation decreased [Unknown]
  - Malaise [Unknown]
  - Wheezing [Unknown]

NARRATIVE: CASE EVENT DATE: 20211101
